FAERS Safety Report 14920347 (Version 2)
Quarter: 2020Q1

REPORT INFORMATION
  Report Type: Spontaneous
  Country: CA (occurrence: CA)
  Receive Date: 20180521
  Receipt Date: 20200305
  Transmission Date: 20200409
  Serious: Yes (Other)
  Sender: FDA-Public Use
  Company Number: CA-JNJFOC-20180522397

PATIENT
  Age: 28 Year
  Sex: Male

DRUGS (1)
  1. MINOXIDIL. [Suspect]
     Active Substance: MINOXIDIL
     Indication: PRODUCT USED FOR UNKNOWN INDICATION
     Dosage: APPLY H.S AND AM
     Route: 061

REACTIONS (4)
  - Tremor [Unknown]
  - Dyspnoea [Unknown]
  - Nausea [Unknown]
  - Palpitations [Unknown]
